FAERS Safety Report 19856749 (Version 1)
Quarter: 2021Q3

REPORT INFORMATION
  Report Type: Spontaneous
  Country: CA (occurrence: CA)
  Receive Date: 20210920
  Receipt Date: 20210920
  Transmission Date: 20211014
  Serious: Yes (Other)
  Sender: FDA-Public Use
  Company Number: CA-VELOXIS PHARMACEUTICALS-2021VELCA-000655

PATIENT
  Age: 56 Year
  Sex: Female
  Weight: 58 kg

DRUGS (21)
  1. RITONAVIR. [Suspect]
     Active Substance: RITONAVIR
     Indication: ANTIRETROVIRAL THERAPY
     Dosage: 100 MILLIGRAM, BID
     Dates: start: 2015
  2. DARUNAVIR [Suspect]
     Active Substance: DARUNAVIR
     Indication: ANTIRETROVIRAL THERAPY
     Dosage: 600 MILLIGRAM, BID
     Dates: start: 2015
  3. DARUNAVIR [Suspect]
     Active Substance: DARUNAVIR
     Dosage: UNK
     Dates: start: 20210326, end: 20210331
  4. AMLODIPINE [Concomitant]
     Active Substance: AMLODIPINE BESYLATE
     Indication: PRODUCT USED FOR UNKNOWN INDICATION
     Dosage: UNK
  5. DOLUTEGRAVIR [Concomitant]
     Active Substance: DOLUTEGRAVIR
     Dosage: UNK
     Dates: start: 20210326, end: 20210401
  6. TACROLIMUS. [Suspect]
     Active Substance: TACROLIMUS
     Indication: PROPHYLAXIS AGAINST TRANSPLANT REJECTION
     Dosage: 9 MILLIGRAM, QD
     Dates: start: 20210326, end: 20210329
  7. TACROLIMUS. [Suspect]
     Active Substance: TACROLIMUS
     Dosage: 0.5 MILLIGRAM EVERY 10 DAYS
     Dates: start: 20210407
  8. RITONAVIR. [Suspect]
     Active Substance: RITONAVIR
     Dosage: UNK
     Dates: start: 20210326, end: 20210331
  9. PANTOPRAZOLE [Concomitant]
     Active Substance: PANTOPRAZOLE
     Indication: PRODUCT USED FOR UNKNOWN INDICATION
     Dosage: UNK
  10. DOLUTEGRAVIR [Concomitant]
     Active Substance: DOLUTEGRAVIR
     Dosage: UNK
     Dates: start: 20210405, end: 20210526
  11. TACROLIMUS. [Suspect]
     Active Substance: TACROLIMUS
     Dosage: 1 MILLIGRAM
     Dates: start: 20210403
  12. DARUNAVIR [Suspect]
     Active Substance: DARUNAVIR
     Dosage: UNK
     Dates: start: 20210405, end: 20210526
  13. MYCOPHENOLATE [Suspect]
     Active Substance: MYCOPHENOLIC ACID
     Indication: PROPHYLAXIS AGAINST TRANSPLANT REJECTION
     Dosage: UNK
  14. ABACAVIR. [Concomitant]
     Active Substance: ABACAVIR
     Dosage: UNK
     Dates: start: 20210405, end: 20210526
  15. PREDNISONE. [Suspect]
     Active Substance: PREDNISONE
     Indication: PROPHYLAXIS AGAINST TRANSPLANT REJECTION
     Dosage: UNK
  16. RITONAVIR. [Suspect]
     Active Substance: RITONAVIR
     Dosage: UNK
     Dates: start: 20210405
  17. FERROUS FUMARATE [Concomitant]
     Active Substance: FERROUS FUMARATE
     Indication: PRODUCT USED FOR UNKNOWN INDICATION
     Dosage: UNK
  18. ABACAVIR. [Concomitant]
     Active Substance: ABACAVIR
     Indication: ANTIRETROVIRAL THERAPY
     Dosage: 600 MILLIGRAM, QD
     Dates: start: 2015
  19. SULFAMETHOXAZOLE;TRIMETHOPRIM [Concomitant]
     Active Substance: SULFAMETHOXAZOLE\TRIMETHOPRIM
     Indication: PRODUCT USED FOR UNKNOWN INDICATION
     Dosage: UNK
  20. ABACAVIR. [Concomitant]
     Active Substance: ABACAVIR
     Dosage: UNK
     Dates: start: 20210326, end: 20210401
  21. DOLUTEGRAVIR [Concomitant]
     Active Substance: DOLUTEGRAVIR
     Indication: ANTIRETROVIRAL THERAPY
     Dosage: 50 MILLIGRAM, QD
     Dates: start: 2015

REACTIONS (5)
  - Labelled drug-drug interaction medication error [Recovered/Resolved]
  - Immunosuppressant drug level increased [Recovered/Resolved]
  - Nephropathy toxic [Recovered/Resolved]
  - Delayed graft function [Recovered/Resolved]
  - New onset diabetes after transplantation [Unknown]

NARRATIVE: CASE EVENT DATE: 20210330
